FAERS Safety Report 8157508-5 (Version None)
Quarter: 2012Q1

REPORT INFORMATION
  Report Type: 
  Country: None (occurrence: None)
  Receive Date: 20120222
  Receipt Date: 20120221
  Transmission Date: 20120608
  Serious: Yes (Other)
  Sender: FDA-Public Use
  Company Number: GB-PFIZER INC-2012046398

PATIENT
  Age: 62 Year
  Sex: Male
  Weight: 121 kg

DRUGS (3)
  1. BISOPROLOL FUMARATE [Concomitant]
     Dosage: UNK
  2. VARENICLINE TARTRATE [Suspect]
     Indication: SMOKING CESSATION THERAPY
     Dosage: UNK
     Route: 048
     Dates: start: 20120117, end: 20120206
  3. ACETYLSALICYLIC ACID [Concomitant]
     Dosage: UNK

REACTIONS (3)
  - NIGHT SWEATS [None]
  - DEPRESSED MOOD [None]
  - ABNORMAL DREAMS [None]
